FAERS Safety Report 4834122-8 (Version None)
Quarter: 2005Q4

REPORT INFORMATION
  Report Type: 
  Country: None (occurrence: None)
  Receive Date: 20051122
  Receipt Date: 20051104
  Transmission Date: 20060501
  Serious: Yes (Death)
  Sender: FDA-Public Use
  Company Number: FR-BRISTOL-MYERS SQUIBB COMPANY-13180468

PATIENT

DRUGS (7)
  1. VP-16 [Suspect]
     Indication: NON-HODGKIN'S LYMPHOMA
  2. IFOSFAMIDE [Suspect]
     Indication: NON-HODGKIN'S LYMPHOMA
  3. UROMITEXAN [Suspect]
     Indication: NON-HODGKIN'S LYMPHOMA
  4. MITOXANTRONE [Suspect]
     Indication: NON-HODGKIN'S LYMPHOMA
  5. DEXAMETHASONE [Suspect]
     Indication: NON-HODGKIN'S LYMPHOMA
  6. METHYLGLYOXAL [Suspect]
     Indication: NON-HODGKIN'S LYMPHOMA
  7. FILGRASTIM [Suspect]
     Indication: NON-HODGKIN'S LYMPHOMA

REACTIONS (1)
  - DEATH [None]
